FAERS Safety Report 23845796 (Version 2)
Quarter: 2024Q2

REPORT INFORMATION
  Report Type: Spontaneous
  Country: IT (occurrence: IT)
  Receive Date: 20240512
  Receipt Date: 20240515
  Transmission Date: 20240716
  Serious: Yes (Hospitalization, Other)
  Sender: FDA-Public Use
  Company Number: None

PATIENT
  Age: 88 Year
  Sex: Male

DRUGS (13)
  1. ENOXAPARIN SODIUM [Interacting]
     Active Substance: ENOXAPARIN SODIUM
     Indication: Atrial fibrillation
     Dosage: 4000 IU
     Route: 058
     Dates: start: 20240416
  2. DICLOFENAC SODIUM [Suspect]
     Active Substance: DICLOFENAC\DICLOFENAC SODIUM
     Indication: Pain in extremity
     Dosage: UNK
     Route: 061
     Dates: start: 20240412, end: 20240413
  3. WARFARIN SODIUM [Interacting]
     Active Substance: WARFARIN SODIUM
     Indication: Atrial fibrillation
     Dosage: 1 DF
     Dates: start: 20240101, end: 20240416
  4. ALLOPURINOL [Concomitant]
     Active Substance: ALLOPURINOL
     Indication: Hyperuricaemia
     Dosage: 300 MG, QD (300 MG 1/2 TAB AT MIDDAY FOR THE PAST YEAR ? RENAL FAILURE WITH HYPERURICEMIA)
  5. PANTOPRAZOLE [Concomitant]
     Active Substance: PANTOPRAZOLE
     Indication: Gastrointestinal vascular malformation haemorrhagic
     Dosage: 40 MG
  6. LYRICA [Concomitant]
     Active Substance: PREGABALIN
     Dosage: UNK, QD (75+25 MG/DAY)
     Dates: start: 20230101
  7. ROSUVASTATIN [Concomitant]
     Active Substance: ROSUVASTATIN
     Indication: Hypercholesterolaemia
     Dosage: 40 MG, QD (40 MG 1 TAB AT 20:00 FOR THE PAST YEAR ? LIPID METABOLISM DISORDER)
  8. OMEGA-3 FATTY ACIDS [Concomitant]
     Active Substance: OMEGA-3 FATTY ACIDS
     Indication: Hypercholesterolaemia
     Dosage: 1000 MG, QD (1000 MG 1 TAB AT 20:00 FOR THE PAST YEAR ? LIPID METABOLISM DISORDER)
  9. JARDIANCE [Concomitant]
     Active Substance: EMPAGLIFLOZIN
     Dosage: 10 MG, QD (JARDIANCE 10 MG 1 TAB AT MIDDAY FOR DIABETES ? FOR THE PAST YEAR)
  10. BISOPROLOL FUMARATE [Concomitant]
     Active Substance: BISOPROLOL FUMARATE
     Indication: Cardiac failure
     Dosage: 1.25 MG
  11. LASIX [Concomitant]
     Active Substance: FUROSEMIDE
     Indication: Cardiac failure
     Dosage: 25 MG, QD
     Dates: start: 20230101
  12. AVODART [Concomitant]
     Active Substance: DUTASTERIDE
     Indication: Benign prostatic hyperplasia
     Dosage: 0.5 MG, QD (AVODART 0.5 MG 1 TAB AT 20:00 FOR THE PAST YEAR ? ENLARGED PROSTATE)
  13. KCL [Concomitant]
     Active Substance: POTASSIUM CHLORIDE
     Indication: Hypokalaemia
     Dosage: 1 DF, QD (KCL-RETARD 1 TAB AT MIDDAY FOR THE PAST MONTH ? HYPOKALEMIA)

REACTIONS (4)
  - Renal failure [Recovering/Resolving]
  - Gastric ulcer [Recovering/Resolving]
  - Gastric haemorrhage [Recovering/Resolving]
  - Anaemia [Recovering/Resolving]

NARRATIVE: CASE EVENT DATE: 20240415
